FAERS Safety Report 5248462-4 (Version None)
Quarter: 2007Q1

REPORT INFORMATION
  Report Type: 
  Country: None (occurrence: None)
  Receive Date: 20070227
  Receipt Date: 20070215
  Transmission Date: 20070707
  Serious: Yes (Other)
  Sender: FDA-Public Use
  Company Number: US-PFIZER INC-2007013862

PATIENT
  Sex: Female

DRUGS (4)
  1. LIPITOR [Suspect]
  2. ACCUPRIL [Interacting]
  3. HYDROCHLOROTHIAZIDE [Interacting]
  4. FOSAMAX [Concomitant]

REACTIONS (3)
  - BLOOD PRESSURE INCREASED [None]
  - DRUG INTERACTION [None]
  - HYPOAESTHESIA [None]
